FAERS Safety Report 25841065 (Version 1)
Quarter: 2025Q3

REPORT INFORMATION
  Report Type: Spontaneous
  Country: JP (occurrence: JP)
  Receive Date: 20250924
  Receipt Date: 20250924
  Transmission Date: 20251021
  Serious: Yes (Hospitalization)
  Sender: BAUSCH AND LOMB
  Company Number: JP-BAUSCH-BH-2025-017881

PATIENT
  Age: 89 Year
  Sex: Female

DRUGS (19)
  1. LULICONAZOLE [Suspect]
     Active Substance: LULICONAZOLE
     Indication: Tinea pedis
     Dosage: BOTH LEGS, QD
     Route: 062
     Dates: start: 20250620, end: 20250814
  2. VONOPRAZAN FUMARATE [Concomitant]
     Active Substance: VONOPRAZAN FUMARATE
     Indication: Product used for unknown indication
     Route: 065
     Dates: start: 20200520, end: 20250911
  3. ATORVASTATIN [Concomitant]
     Active Substance: ATORVASTATIN
     Indication: Product used for unknown indication
     Route: 065
     Dates: start: 20200520, end: 20250911
  4. INDAPAMIDE [Concomitant]
     Active Substance: INDAPAMIDE
     Indication: Product used for unknown indication
     Route: 065
     Dates: start: 20200520, end: 20250911
  5. NIFEDIPINE [Concomitant]
     Active Substance: NIFEDIPINE
     Indication: Product used for unknown indication
     Route: 065
     Dates: start: 20200520, end: 20250911
  6. TELMISARTAN [Concomitant]
     Active Substance: TELMISARTAN
     Indication: Product used for unknown indication
     Route: 065
     Dates: start: 20200520, end: 20250911
  7. URAPIDIL [Concomitant]
     Active Substance: URAPIDIL
     Indication: Product used for unknown indication
     Route: 065
     Dates: start: 20200520, end: 20250911
  8. MIRTAZAPINE [Concomitant]
     Active Substance: MIRTAZAPINE
     Indication: Product used for unknown indication
     Route: 065
     Dates: start: 20200623, end: 20250911
  9. ARIPIPRAZOLE [Concomitant]
     Active Substance: ARIPIPRAZOLE
     Indication: Product used for unknown indication
     Route: 065
     Dates: start: 20241018, end: 20250911
  10. SULFASALAZINE [Concomitant]
     Active Substance: SULFASALAZINE
     Indication: Product used for unknown indication
     Route: 065
     Dates: start: 20210622, end: 20250911
  11. IGURATIMOD [Concomitant]
     Active Substance: IGURATIMOD
     Indication: Product used for unknown indication
     Route: 065
     Dates: start: 20221116, end: 20250911
  12. CALCIUM CARBONATE\CHOLECALCIFEROL\MAGNESIUM CARBONATE [Concomitant]
     Active Substance: CALCIUM CARBONATE\CHOLECALCIFEROL\MAGNESIUM CARBONATE
     Indication: Product used for unknown indication
     Route: 065
     Dates: start: 20211206, end: 20250911
  13. METHYLCOBALAMIN [Concomitant]
     Active Substance: METHYLCOBALAMIN
     Indication: Product used for unknown indication
     Route: 065
     Dates: start: 20231227, end: 20250911
  14. NEUROTROPIN [Concomitant]
     Active Substance: NEUROTROPIN
     Indication: Product used for unknown indication
     Route: 065
     Dates: start: 20231227, end: 20250911
  15. CALONAL [Concomitant]
     Active Substance: ACETAMINOPHEN
     Indication: Product used for unknown indication
     Route: 065
     Dates: start: 20230608, end: 20250911
  16. ESZOPICLONE [Concomitant]
     Active Substance: ESZOPICLONE
     Indication: Product used for unknown indication
     Dates: start: 20250402, end: 20250911
  17. TSUMURA BAKUMONDOTO [Concomitant]
     Indication: Product used for unknown indication
     Route: 048
     Dates: start: 20221214, end: 20250911
  18. PREGABALIN [Concomitant]
     Active Substance: PREGABALIN
     Indication: Product used for unknown indication
     Dates: start: 20250611, end: 20250911
  19. AZOSEMIDE [Concomitant]
     Active Substance: AZOSEMIDE
     Indication: Product used for unknown indication
     Route: 065
     Dates: start: 20250709, end: 20250911

REACTIONS (2)
  - Oedema [Recovered/Resolved]
  - Application site purpura [Recovered/Resolved]

NARRATIVE: CASE EVENT DATE: 20250814
